FAERS Safety Report 24239638 (Version 1)
Quarter: 2024Q3

REPORT INFORMATION
  Report Type: Spontaneous
  Country: US (occurrence: US)
  Receive Date: 20240822
  Receipt Date: 20240822
  Transmission Date: 20241017
  Serious: No
  Sender: AVADEL CNS PHARMA
  Company Number: US-AVADEL CNS PHARMACEUTICALS, LLC-2024AVA00743

PATIENT
  Sex: Female

DRUGS (4)
  1. LUMRYZ [Suspect]
     Active Substance: SODIUM OXYBATE
     Indication: Narcolepsy
     Dosage: 4.5 G
     Route: 048
     Dates: start: 202403, end: 20240410
  2. LUMRYZ [Concomitant]
     Active Substance: SODIUM OXYBATE
     Indication: Narcolepsy
     Dosage: 6 G, ONCE NIGHTLY
     Route: 048
     Dates: start: 20240411, end: 20240412
  3. MODAFINIL [Concomitant]
     Active Substance: MODAFINIL
  4. VYVANSE [Concomitant]
     Active Substance: LISDEXAMFETAMINE DIMESYLATE

REACTIONS (12)
  - Insomnia [Unknown]
  - Middle insomnia [Unknown]
  - Micturition urgency [Unknown]
  - Retching [Unknown]
  - Sexually inappropriate behaviour [Unknown]
  - Abnormal behaviour [Unknown]
  - Illness [Recovering/Resolving]
  - Performance status decreased [Recovering/Resolving]
  - Sedation [Recovering/Resolving]
  - Hangover [Recovering/Resolving]
  - Fall [Unknown]
  - Memory impairment [Unknown]

NARRATIVE: CASE EVENT DATE: 20240101
